FAERS Safety Report 24081380 (Version 2)
Quarter: 2024Q3

REPORT INFORMATION
  Report Type: Report from Study
  Country: US (occurrence: US)
  Receive Date: 20240711
  Receipt Date: 20240722
  Transmission Date: 20241016
  Serious: No
  Sender: ABBVIE
  Company Number: US-ABBVIE-5832327

PATIENT
  Sex: Male
  Weight: 131.08 kg

DRUGS (8)
  1. HUMIRA [Suspect]
     Active Substance: ADALIMUMAB
     Indication: Psoriatic arthropathy
     Route: 058
     Dates: start: 202304, end: 202406
  2. HUMIRA [Suspect]
     Active Substance: ADALIMUMAB
     Indication: Migraine without aura
  3. HUMIRA [Suspect]
     Active Substance: ADALIMUMAB
     Indication: Psoriatic arthropathy
  4. ASPIRIN [Concomitant]
     Active Substance: ASPIRIN
     Indication: Product used for unknown indication
  5. ADDERALL [Concomitant]
     Active Substance: AMPHETAMINE ASPARTATE\AMPHETAMINE SULFATE\DEXTROAMPHETAMINE SACCHARATE\DEXTROAMPHETAMINE SULFATE
     Indication: Product used for unknown indication
  6. METHOCARBAMOL [Concomitant]
     Active Substance: METHOCARBAMOL
     Indication: Product used for unknown indication
  7. VITAMIN D [Concomitant]
     Active Substance: VITAMIN D NOS
     Indication: Product used for unknown indication
  8. LEFLUNOMIDE [Suspect]
     Active Substance: LEFLUNOMIDE
     Indication: Psoriatic arthropathy
     Route: 065
     Dates: start: 2023, end: 2024

REACTIONS (16)
  - Disability [Unknown]
  - Paraesthesia [Recovering/Resolving]
  - Therapeutic product effect decreased [Unknown]
  - Hyporeflexia [Recovering/Resolving]
  - Impaired work ability [Unknown]
  - Psoriasis [Recovering/Resolving]
  - Fatigue [Unknown]
  - Depression [Recovering/Resolving]
  - Attention deficit hyperactivity disorder [Unknown]
  - Neuropathy peripheral [Recovering/Resolving]
  - Gait disturbance [Unknown]
  - White blood cell count decreased [Recovered/Resolved]
  - Disease recurrence [Unknown]
  - Pain [Not Recovered/Not Resolved]
  - Platelet count decreased [Recovered/Resolved]
  - Pelvic pain [Unknown]

NARRATIVE: CASE EVENT DATE: 20230101
